FAERS Safety Report 4325588-0 (Version None)
Quarter: 2004Q1

REPORT INFORMATION
  Report Type: 
  Country: None (occurrence: None)
  Receive Date: 20040324
  Receipt Date: 20040304
  Transmission Date: 20041129
  Serious: Yes (Hospitalization, Other)
  Sender: FDA-Public Use
  Company Number: USA040260053

PATIENT
  Age: 86 Year
  Sex: Female
  Weight: 64 kg

DRUGS (17)
  1. FORTEO [Suspect]
     Indication: OSTEOPOROSIS
     Dosage: 290 UG/1 DAY
     Dates: start: 20030401
  2. LASIX [Concomitant]
  3. ZESTRIL [Concomitant]
  4. DIGOXIN [Concomitant]
  5. REMERON [Concomitant]
  6. TENORMIN [Concomitant]
  7. PLAVIX [Concomitant]
  8. ASPIRIN [Concomitant]
  9. PREVACID [Concomitant]
  10. NEURONTIN [Concomitant]
  11. GLUCOTROL [Concomitant]
  12. COLACE (DOCUSATE SODIUM) [Concomitant]
  13. HYDROCHLOROTHIAZIDE [Concomitant]
  14. CELEBREX [Concomitant]
  15. OXYCONTIN [Concomitant]
  16. IMDUR [Concomitant]
  17. DURAGESIC [Concomitant]

REACTIONS (10)
  - ACUTE MYOCARDIAL INFARCTION [None]
  - AORTIC STENOSIS [None]
  - AORTIC VALVE INCOMPETENCE [None]
  - CARDIAC FAILURE CONGESTIVE [None]
  - CONDITION AGGRAVATED [None]
  - DEPRESSION [None]
  - FALL [None]
  - PHARMACEUTICAL PRODUCT COMPLAINT [None]
  - URINARY TRACT INFECTION [None]
  - VENTRICULAR DYSFUNCTION [None]
